FAERS Safety Report 7408354-9 (Version None)
Quarter: 2011Q2

REPORT INFORMATION
  Report Type: 
  Country: None (occurrence: None)
  Receive Date: 20110401
  Receipt Date: 20110325
  Transmission Date: 20111010
  Serious: Yes (Hospitalization, Disabling, Other)
  Sender: FDA-Public Use
  Company Number: 2010SP015815

PATIENT
  Age: 34 Year
  Sex: Female
  Weight: 70.3075 kg

DRUGS (4)
  1. NUVARING [Suspect]
     Indication: CONTRACEPTION
     Dates: start: 20040129, end: 20060313
  2. SYNTHROID [Concomitant]
  3. CLOPIDOGREL [Concomitant]
  4. METOPROLOL TARTRATE [Concomitant]

REACTIONS (25)
  - RESPIRATORY FAILURE [None]
  - IMPAIRED DRIVING ABILITY [None]
  - ANXIETY [None]
  - DEPRESSION [None]
  - IMPAIRED WORK ABILITY [None]
  - HYPERTENSION [None]
  - TRAUMATIC BRAIN INJURY [None]
  - HAEMOPHILUS TEST POSITIVE [None]
  - URINARY TRACT INFECTION [None]
  - HYPOXIC-ISCHAEMIC ENCEPHALOPATHY [None]
  - POLYCYTHAEMIA [None]
  - CORONARY ARTERY OCCLUSION [None]
  - POSTURE ABNORMAL [None]
  - COMA [None]
  - COGNITIVE DISORDER [None]
  - ELECTROENCEPHALOGRAM ABNORMAL [None]
  - PULMONARY EMBOLISM [None]
  - ACTIVITIES OF DAILY LIVING IMPAIRED [None]
  - CONFUSIONAL STATE [None]
  - LACERATION [None]
  - REFUSAL OF TREATMENT BY PATIENT [None]
  - CONVULSION [None]
  - CARDIO-RESPIRATORY ARREST [None]
  - SYNCOPE [None]
  - ACUTE MYOCARDIAL INFARCTION [None]
